FAERS Safety Report 18661593 (Version 1)
Quarter: 2020Q4

REPORT INFORMATION
  Report Type: Spontaneous
  Country: DE (occurrence: TW)
  Receive Date: 20201224
  Receipt Date: 20201224
  Transmission Date: 20210114
  Serious: Yes (Other)
  Sender: FDA-Public Use
  Company Number: TW-ELI_LILLY_AND_COMPANY-TW202012011891

PATIENT
  Age: 59 Year
  Sex: Male
  Weight: 57 kg

DRUGS (9)
  1. ERBITUX [Suspect]
     Active Substance: CETUXIMAB
     Dosage: 250 MG/M2, UNKNOWN
     Route: 041
     Dates: start: 20190703
  2. VINCRISTINE [Concomitant]
     Active Substance: VINCRISTINE
     Indication: TONGUE NEOPLASM MALIGNANT STAGE UNSPECIFIED
     Dosage: 1 MG/M2, UNK
     Route: 041
     Dates: start: 20190704
  3. METHOTREXATE. [Concomitant]
     Active Substance: METHOTREXATE
     Indication: TONGUE NEOPLASM MALIGNANT STAGE UNSPECIFIED
     Dosage: 30 MG/M2, UNK
     Route: 041
     Dates: start: 20190628
  4. BLEOMYCIN [Concomitant]
     Active Substance: BLEOMYCIN SULFATE
     Indication: TONGUE NEOPLASM MALIGNANT STAGE UNSPECIFIED
     Dosage: 10 MG/M2, UNK
     Route: 041
     Dates: start: 20190704
  5. FLUOROURACIL. [Concomitant]
     Active Substance: FLUOROURACIL
     Indication: TONGUE NEOPLASM MALIGNANT STAGE UNSPECIFIED
     Dosage: 1000 MG/M2, UNK
     Route: 041
     Dates: start: 20190704
  6. EPIRUBICIN [Concomitant]
     Active Substance: EPIRUBICIN
     Indication: TONGUE NEOPLASM MALIGNANT STAGE UNSPECIFIED
     Dosage: 30 MG/M2, UNK
     Route: 041
     Dates: start: 20190628
  7. CISPLATIN. [Concomitant]
     Active Substance: CISPLATIN
     Indication: TONGUE NEOPLASM MALIGNANT STAGE UNSPECIFIED
     Dosage: 25 MG/M2, UNK
     Route: 041
     Dates: start: 20190704
  8. ERBITUX [Suspect]
     Active Substance: CETUXIMAB
     Indication: TONGUE NEOPLASM MALIGNANT STAGE UNSPECIFIED
     Dosage: 400 MG/M2, UNKNOWN
     Route: 041
     Dates: start: 20190628, end: 20190628
  9. MITOMYCIN. [Concomitant]
     Active Substance: MITOMYCIN
     Indication: TONGUE NEOPLASM MALIGNANT STAGE UNSPECIFIED
     Dosage: 4 MG/M2, UNK
     Route: 041
     Dates: start: 20190704

REACTIONS (2)
  - White blood cell count decreased [Recovered/Resolved]
  - White blood cell count decreased [Recovered/Resolved]

NARRATIVE: CASE EVENT DATE: 20190717
